FAERS Safety Report 4421267-X (Version None)
Quarter: 2004Q3

REPORT INFORMATION
  Report Type: 
  Country: None (occurrence: None)
  Receive Date: 20040804
  Receipt Date: 20040723
  Transmission Date: 20050211
  Serious: Yes (Death)
  Sender: FDA-Public Use
  Company Number: 04P-229-0268190-00

PATIENT
  Age: 56 Year
  Sex: Male

DRUGS (6)
  1. HUMIRA [Suspect]
     Indication: RHEUMATOID ARTHRITIS
     Dosage: 20 MG, 1 IN 1 WK, SUBCUTANEOUS
     Route: 058
  2. METHOTREXATE [Concomitant]
  3. CELECOXIB [Concomitant]
  4. CARBAMAZEPINE [Concomitant]
  5. PREDNISOLONE [Concomitant]
  6. CHLORPROMAZINE HCL [Concomitant]

REACTIONS (1)
  - ACUTE RESPIRATORY DISTRESS SYNDROME [None]
